FAERS Safety Report 9737474 (Version 2)
Quarter: 2013Q4

REPORT INFORMATION
  Report Type: Spontaneous
  Country: US (occurrence: US)
  Receive Date: 20131206
  Receipt Date: 20131206
  Transmission Date: 20140711
  Serious: No
  Sender: FDA-Public Use
  Company Number: US-GILEAD-2013-0085531

PATIENT
  Sex: Female
  Weight: 54.88 kg

DRUGS (1)
  1. HEPSERA [Suspect]
     Indication: HEPATITIS B
     Dosage: 10 MG, UNK

REACTIONS (4)
  - Urinary tract infection [Unknown]
  - Dizziness [Unknown]
  - Asthenia [Unknown]
  - Fatigue [Unknown]
